FAERS Safety Report 6859895-4 (Version None)
Quarter: 2010Q3

REPORT INFORMATION
  Report Type: 
  Country: None (occurrence: None)
  Receive Date: 20100719
  Receipt Date: 20100719
  Transmission Date: 20110219
  Serious: Yes (Life-Threatening, Hospitalization, Disabling, Other)
  Sender: FDA-Public Use
  Company Number: None

PATIENT
  Age: 53 Year
  Sex: Female
  Weight: 66.2252 kg

DRUGS (1)
  1. LEVAQUIN [Suspect]
     Indication: RESPIRATORY TRACT INFECTION
     Dosage: 1 PILL ONCE A DAY
     Dates: start: 20100508

REACTIONS (7)
  - FACIAL BONES FRACTURE [None]
  - FALL [None]
  - FEELING ABNORMAL [None]
  - INJURY [None]
  - LOSS OF CONSCIOUSNESS [None]
  - SKIN LACERATION [None]
  - SYNCOPE [None]
